FAERS Safety Report 23496840 (Version 1)
Quarter: 2024Q1

REPORT INFORMATION
  Report Type: Spontaneous
  Country: US (occurrence: None)
  Receive Date: 20240207
  Receipt Date: 20240207
  Transmission Date: 20240410
  Serious: No
  Sender: FDA-Public Use
  Company Number: US-ROCHE-3470653

PATIENT
  Age: 82 Year
  Sex: Male

DRUGS (6)
  1. XOLAIR [Suspect]
     Active Substance: OMALIZUMAB
     Indication: Product used for unknown indication
     Route: 065
  2. PREDNISONE [Concomitant]
     Active Substance: PREDNISONE
  3. HYDROCORTISONE [Concomitant]
     Active Substance: HYDROCORTISONE
  4. FUROSEMIDE [Concomitant]
     Active Substance: FUROSEMIDE
     Indication: Fluid retention
  5. PRIMIDONE [Concomitant]
     Active Substance: PRIMIDONE
  6. TADALAFIL [Concomitant]
     Active Substance: TADALAFIL

REACTIONS (2)
  - Pruritus [Unknown]
  - Urticaria [Unknown]
